FAERS Safety Report 19392919 (Version 2)
Quarter: 2021Q3

REPORT INFORMATION
  Report Type: Spontaneous
  Country: IT (occurrence: IT)
  Receive Date: 20210609
  Receipt Date: 20210713
  Transmission Date: 20211014
  Serious: Yes (Other)
  Sender: FDA-Public Use
  Company Number: IT-AUROBINDO-AUR-APL-2021-023379

PATIENT
  Age: 56 Year
  Sex: Female

DRUGS (1)
  1. KETOROLAC [Suspect]
     Active Substance: KETOROLAC TROMETHAMINE
     Indication: BACK PAIN
     Dosage: UNK
     Route: 030

REACTIONS (5)
  - Neurotoxicity [Unknown]
  - Peroneal nerve injury [Unknown]
  - Injection site nerve damage [Unknown]
  - Off label use [Unknown]
  - Hypoaesthesia [Unknown]
